FAERS Safety Report 9515700 (Version 1)
Quarter: 2013Q1

REPORT INFORMATION
  Report Type: Spontaneous
  Country: US (occurrence: None)
  Receive Date: 20130305
  Receipt Date: 20130305
  Transmission Date: 20140127
  Serious: Yes (Hospitalization)
  Sender: FDA-Public Use
  Company Number: 163-21880-12112469

PATIENT
  Age: 91 Year
  Sex: Male

DRUGS (14)
  1. REVLIMID [Suspect]
     Indication: PLASMA CELL MYELOMA
     Dosage: 10 MG, 1 IN 1 WK, PO
     Route: 048
     Dates: start: 20080402
  2. PANTOPRAZOLE [Concomitant]
  3. PREDNISON (PREDINISONE) (UNKNOWN) [Concomitant]
  4. CLOPIDOGREL (CLOPIDOGREL) [Concomitant]
  5. ATORVASTIN (UNKNOWN) [Concomitant]
  6. FLUDROCORTISONE (FLUDROCORTISONE) (UNKNOWN)? [Concomitant]
  7. ERYTHROMYCIN OPHTHAL (ERYTHROMYCIN) (UNKNOWN) [Concomitant]
  8. AMIODARONE (AMIODARONE) (UNKNOWN) [Concomitant]
  9. ALLOPURINOL (ALLOPURINOL) (UNKNOWN) [Concomitant]
  10. TRIAMCINOLONE (TRIAMCINOLONE) (UNKNOWN)? [Concomitant]
  11. POTASSIUM CHLORIDE (POTASSIUM CHLORIDE) (UNKNOWN) [Concomitant]
  12. CHLORHEXIDINE (CHLORHEXIDINE) (UNKNOWN) [Concomitant]
  13. FUROSEMIDE (FUROSEMIDE) (UNKNOWN) [Concomitant]
  14. DIPHENHYDRAMINE (DIPHENHYDRAMINE) (UNKNOWN) [Concomitant]

REACTIONS (5)
  - Hallucination [None]
  - Insomnia [None]
  - Blood pressure decreased [None]
  - Heart rate decreased [None]
  - Loss of consciousness [None]
